FAERS Safety Report 9745851 (Version 1)
Quarter: 2013Q4

REPORT INFORMATION
  Report Type: Spontaneous
  Country: US (occurrence: None)
  Receive Date: 20131206
  Receipt Date: 20131206
  Transmission Date: 20140711
  Serious: Yes (Life-Threatening)
  Sender: FDA-Public Use
  Company Number: None

PATIENT
  Age: 62 Year
  Sex: Male

DRUGS (2)
  1. AMOXICILLIN [Suspect]
     Indication: BACTERIAL INFECTION
     Route: 048
     Dates: start: 20131023, end: 20131023
  2. EPIPEN [Suspect]
     Route: 030
     Dates: start: 20131023, end: 20131123

REACTIONS (8)
  - Flushing [None]
  - Hyperhidrosis [None]
  - Vomiting [None]
  - Hypersensitivity [None]
  - Fall [None]
  - Dyspnoea [None]
  - Respiratory arrest [None]
  - Loss of consciousness [None]
